FAERS Safety Report 24182220 (Version 1)
Quarter: 2024Q3

REPORT INFORMATION
  Report Type: Spontaneous
  Country: JP (occurrence: JP)
  Receive Date: 20240807
  Receipt Date: 20240807
  Transmission Date: 20241017
  Serious: Yes (Death, Other)
  Sender: RANBAXY
  Company Number: JP-SUN PHARMACEUTICAL INDUSTRIES LTD-2024R1-449602

PATIENT
  Sex: Female
  Weight: 41 kg

DRUGS (2)
  1. LACOSAMIDE [Suspect]
     Active Substance: LACOSAMIDE
     Indication: Product used for unknown indication
     Dosage: UNK (63 TABLETS)
     Route: 065
  2. MIRTAZAPINE [Suspect]
     Active Substance: MIRTAZAPINE
     Indication: Product used for unknown indication
     Dosage: UNK (60 TABLETS)
     Route: 065

REACTIONS (2)
  - Toxicity to various agents [Fatal]
  - Intentional overdose [Fatal]
